FAERS Safety Report 20994361 (Version 2)
Quarter: 2022Q3

REPORT INFORMATION
  Report Type: Spontaneous
  Country: IN (occurrence: IN)
  Receive Date: 20220622
  Receipt Date: 20220902
  Transmission Date: 20221027
  Serious: Yes (Hospitalization)
  Sender: FDA-Public Use
  Company Number: IN-MYLANLABS-2022M1046923

PATIENT
  Age: 4 Year
  Sex: Female

DRUGS (8)
  1. CARBOPLATIN [Suspect]
     Active Substance: CARBOPLATIN
     Indication: Nephroblastoma
     Dosage: 600 MILLIGRAM/SQ. METER (AT WEEK 4 AND WEEK 10)
     Route: 065
     Dates: start: 20200323
  2. CARBOPLATIN [Suspect]
     Active Substance: CARBOPLATIN
     Indication: Metastases to lung
  3. ETOPOSIDE [Suspect]
     Active Substance: ETOPOSIDE
     Indication: Nephroblastoma
     Dosage: UNK
     Route: 065
     Dates: start: 20200323
  4. ETOPOSIDE [Suspect]
     Active Substance: ETOPOSIDE
     Indication: Metastases to lung
  5. CYCLOPHOSPHAMIDE [Concomitant]
     Active Substance: CYCLOPHOSPHAMIDE
     Indication: Nephroblastoma
     Dosage: UNK
     Route: 065
     Dates: start: 20200323
  6. CYCLOPHOSPHAMIDE [Concomitant]
     Active Substance: CYCLOPHOSPHAMIDE
     Indication: Metastases to lung
  7. DOXORUBICIN [Concomitant]
     Active Substance: DOXORUBICIN
     Indication: Nephroblastoma
     Dosage: UNK
     Route: 065
     Dates: start: 20200323
  8. DOXORUBICIN [Concomitant]
     Active Substance: DOXORUBICIN
     Indication: Metastases to lung

REACTIONS (3)
  - Fanconi syndrome acquired [Recovered/Resolved]
  - Myelosuppression [Recovered/Resolved]
  - Staphylococcal sepsis [Recovered/Resolved]

NARRATIVE: CASE EVENT DATE: 20200101
